FAERS Safety Report 9157667 (Version 1)
Quarter: 2013Q1

REPORT INFORMATION
  Report Type: Spontaneous
  Country: AU (occurrence: None)
  Receive Date: 20130211
  Receipt Date: 20130211
  Transmission Date: 20140127
  Serious: Yes (Other)
  Sender: FDA-Public Use
  Company Number: 2012-121515

PATIENT
  Age: 80 Year
  Sex: Male

DRUGS (6)
  1. AFLIBERCEPT [Suspect]
     Route: 031
     Dates: start: 20121002
  2. ATACAND [Concomitant]
  3. PANADOL EXTRA [Concomitant]
  4. SPIRIVA [Concomitant]
  5. ASTRIX [Concomitant]
  6. DIAZEPAM [Concomitant]

REACTIONS (1)
  - Retinal haemorrhage [None]
